FAERS Safety Report 4967912-1 (Version None)
Quarter: 2006Q2

REPORT INFORMATION
  Report Type: 
  Country: None (occurrence: None)
  Receive Date: 20060410
  Receipt Date: 20060329
  Transmission Date: 20061013
  Serious: Yes (Hospitalization)
  Sender: FDA-Public Use
  Company Number: US-MERCK-0604USA00132

PATIENT
  Age: 53 Year
  Sex: Female
  Weight: 78 kg

DRUGS (7)
  1. VIOXX [Suspect]
     Indication: OSTEOARTHRITIS
     Route: 048
     Dates: start: 20011005, end: 20011105
  2. VIOXX [Suspect]
     Route: 048
     Dates: start: 20011005, end: 20011105
  3. VIOXX [Suspect]
     Route: 048
     Dates: start: 20021001, end: 20040930
  4. VIOXX [Suspect]
     Route: 048
     Dates: start: 20021001, end: 20040930
  5. AVAPRO [Concomitant]
     Route: 065
  6. TRIAMTERENE [Concomitant]
     Route: 065
  7. LIPITOR [Concomitant]
     Route: 065

REACTIONS (22)
  - ANXIETY [None]
  - ARTHROPATHY [None]
  - BLOOD PRESSURE SYSTOLIC INCREASED [None]
  - BORDERLINE GLAUCOMA [None]
  - CATARACT NUCLEAR [None]
  - CEREBRAL ARTERY STENOSIS [None]
  - CEREBRAL INFARCTION [None]
  - CEREBROVASCULAR ACCIDENT [None]
  - DEPRESSION [None]
  - DRUG INTOLERANCE [None]
  - GAMMOPATHY [None]
  - HEADACHE [None]
  - HEMIANOPIA [None]
  - HYPERTENSION [None]
  - HYPONATRAEMIA [None]
  - INFARCTION [None]
  - PAIN OF SKIN [None]
  - PHOTOPSIA [None]
  - SINUS TACHYCARDIA [None]
  - TENDERNESS [None]
  - TOE DEFORMITY [None]
  - VISUAL FIELD DEFECT [None]
